FAERS Safety Report 8766592 (Version 1)
Quarter: 2012Q4

REPORT INFORMATION
  Report Type: 
  Country: US (occurrence: US)
  Receive Date: 20120903
  Receipt Date: 20120903
  Transmission Date: 20130627
  Serious: Yes (Other)
  Sender: FDA-Public Use
  Company Number: US-ELI_LILLY_AND_COMPANY-US201104006194

PATIENT
  Sex: Female

DRUGS (1)
  1. HUMATROPE [Suspect]
     Dosage: 0.04 DF, UNK

REACTIONS (15)
  - Visual acuity reduced [Unknown]
  - Retinal disorder [Unknown]
  - Drug dose omission [Unknown]
  - Headache [Unknown]
  - Pyrexia [Unknown]
  - Ankle fracture [Unknown]
  - Memory impairment [Unknown]
  - Dry throat [Unknown]
  - Dizziness [Unknown]
  - Insomnia [Unknown]
  - Ocular discomfort [Unknown]
  - Joint stiffness [Unknown]
  - Multiple sclerosis [Unknown]
  - Glaucoma [Unknown]
  - Cataract [Unknown]
